FAERS Safety Report 8539168-4 (Version None)
Quarter: 2012Q3

REPORT INFORMATION
  Report Type: 
  Country: None (occurrence: None)
  Receive Date: 20120726
  Receipt Date: 20120716
  Transmission Date: 20120928
  Serious: Yes (Hospitalization)
  Sender: FDA-Public Use
  Company Number: FR-NOVOPROD-356119

PATIENT
  Age: 45 Year
  Sex: Female

DRUGS (1)
  1. LEVEMIR [Suspect]
     Indication: PRODUCT USED FOR UNKNOWN INDICATION
     Dosage: UNK
     Route: 058
     Dates: start: 20110601, end: 20120618

REACTIONS (3)
  - ALANINE AMINOTRANSFERASE INCREASED [None]
  - COLON CANCER [None]
  - GAMMA-GLUTAMYLTRANSFERASE INCREASED [None]
